FAERS Safety Report 14569626 (Version 1)
Quarter: 2018Q1

REPORT INFORMATION
  Report Type: Spontaneous
  Country: US (occurrence: US)
  Receive Date: 20180224
  Receipt Date: 20180224
  Transmission Date: 20180509
  Serious: Yes (Hospitalization)
  Sender: FDA-Public Use
  Company Number: US-TEVA-2018-US-861909

PATIENT
  Sex: Male

DRUGS (3)
  1. PROAIR HFA [Suspect]
     Active Substance: ALBUTEROL SULFATE
     Dosage: TOOK 2 ADDITIONAL DOSES, 4 PUFFS TOTAL, DURING THE DAY
     Route: 065
     Dates: start: 20180131, end: 20180131
  2. PROAIR HFA [Suspect]
     Active Substance: ALBUTEROL SULFATE
     Indication: WHEEZING
     Dosage: 2 PUFFS FOUR TIMES PER DAY
     Route: 065
     Dates: start: 20180129
  3. PROAIR HFA [Suspect]
     Active Substance: ALBUTEROL SULFATE
     Dosage: USED 3 DOSES, OR 6 PUFFS
     Route: 065
     Dates: start: 20180130

REACTIONS (1)
  - Cardiac fibrillation [Recovered/Resolved]

NARRATIVE: CASE EVENT DATE: 20180131
